FAERS Safety Report 24759222 (Version 1)
Quarter: 2024Q4

REPORT INFORMATION
  Report Type: Spontaneous
  Country: CA (occurrence: CA)
  Receive Date: 20241220
  Receipt Date: 20241220
  Transmission Date: 20250115
  Serious: Yes (Other)
  Sender: RANBAXY
  Company Number: CA-SUN PHARMACEUTICAL INDUSTRIES LTD-2024R1-485016

PATIENT
  Age: 51 Year
  Sex: Male

DRUGS (1)
  1. SUNITINIB [Suspect]
     Active Substance: SUNITINIB
     Indication: Metastatic neoplasm
     Dosage: 50 MILLIGRAM, QD
     Route: 065

REACTIONS (3)
  - Therapeutic response decreased [Unknown]
  - Hypertension [Recovering/Resolving]
  - Renal injury [Recovering/Resolving]
